FAERS Safety Report 16920776 (Version 1)
Quarter: 2019Q4

REPORT INFORMATION
  Report Type: Spontaneous
  Country: JP (occurrence: JP)
  Receive Date: 20191015
  Receipt Date: 20191015
  Transmission Date: 20200122
  Serious: Yes (Hospitalization, Other)
  Sender: FDA-Public Use
  Company Number: JP-ELI_LILLY_AND_COMPANY-JP201909002895

PATIENT
  Age: 88 Year
  Sex: Female

DRUGS (16)
  1. HUMULIN N [Suspect]
     Active Substance: INSULIN HUMAN
     Indication: PRODUCT USED FOR UNKNOWN INDICATION
     Dosage: UNK
     Route: 058
     Dates: start: 20190716
  2. EVISTA [Concomitant]
     Active Substance: RALOXIFENE HYDROCHLORIDE
     Dosage: 60 MG, DAILY
     Route: 048
     Dates: start: 20190514
  3. CEFZON [CEFDINIR] [Concomitant]
     Dosage: UNK
     Route: 048
     Dates: start: 20190718
  4. MOHRUS L [Concomitant]
     Active Substance: KETOPROFEN
     Dosage: UNK
     Route: 003
     Dates: start: 20190716
  5. CARNACULIN [KALLIDINOGENASE] [Concomitant]
     Dosage: 25 INTERNATIONAL UNIT, TID
     Route: 048
     Dates: start: 20190514
  6. GASTER [Concomitant]
     Active Substance: FAMOTIDINE
     Dosage: 20 MG, DAILY
     Route: 048
     Dates: start: 20190514
  7. HIRUDOID MILD [Concomitant]
     Dosage: UNK, DAILY
     Route: 003
     Dates: start: 20190716
  8. CONIEL [Concomitant]
     Active Substance: BENIDIPINE HYDROCHLORIDE
     Dosage: 4 MG, BID
     Route: 048
     Dates: start: 20190514
  9. MAGMITT [Concomitant]
     Active Substance: MAGNESIUM OXIDE
     Dosage: 500 MG, BID
     Route: 048
     Dates: start: 20190514
  10. CERCINE [Concomitant]
     Active Substance: DIAZEPAM
     Dosage: 2 MG, DAILY
     Route: 048
     Dates: start: 20190514
  11. LENDORMIN D [Concomitant]
     Active Substance: BROTIZOLAM
     Dosage: UNK
     Route: 048
     Dates: start: 20190716
  12. GASMOTIN [Concomitant]
     Active Substance: MOSAPRIDE CITRATE
     Dosage: 5 MG, TID
     Route: 048
     Dates: start: 20190514
  13. CHOREITO [ALISMA PLANTAGO-AQUATICA VAR. ORIEN [Concomitant]
     Dosage: UNK
     Route: 048
     Dates: start: 20190729
  14. OPALMON [Concomitant]
     Active Substance: LIMAPROST
     Dosage: 5 UG, TID
     Route: 048
     Dates: start: 20190514
  15. ALFAROL [Concomitant]
     Active Substance: ALFACALCIDOL
     Dosage: UNK
     Route: 048
     Dates: start: 20190514
  16. EBRANTIL [URAPIDIL] [Concomitant]
     Active Substance: URAPIDIL
     Dosage: UNK
     Route: 048
     Dates: start: 20190729

REACTIONS (3)
  - Incorrect dose administered [Unknown]
  - Hypoglycaemia [Recovering/Resolving]
  - Suicide attempt [Unknown]

NARRATIVE: CASE EVENT DATE: 20190905
